FAERS Safety Report 6339639-5 (Version None)
Quarter: 2009Q3

REPORT INFORMATION
  Report Type: 
  Country: None (occurrence: None)
  Receive Date: 20090821
  Receipt Date: 20090528
  Transmission Date: 20100115
  Serious: No
  Sender: FDA-Public Use
  Company Number: 8047048

PATIENT
  Age: 43 Year
  Sex: Female
  Weight: 90.9 kg

DRUGS (10)
  1. CIMZIA [Suspect]
     Indication: CROHN'S DISEASE
     Dosage: 400 MG SC
     Route: 058
     Dates: start: 20090218
  2. ADVAIR HFA [Concomitant]
  3. LISINOPRIL [Concomitant]
  4. GLYBURIDE [Concomitant]
  5. ASACOL [Concomitant]
  6. CELEBREX [Concomitant]
  7. PRILOSEC [Concomitant]
  8. CANASA [Concomitant]
  9. DOXEPIN HCL [Concomitant]
  10. VITAMIN B-12 [Concomitant]

REACTIONS (6)
  - ARTHRALGIA [None]
  - CYST [None]
  - HEPATIC ENZYME INCREASED [None]
  - INJECTION SITE HAEMATOMA [None]
  - INJECTION SITE RASH [None]
  - JOINT SWELLING [None]
